FAERS Safety Report 6328357-5 (Version None)
Quarter: 2009Q3

REPORT INFORMATION
  Report Type: 
  Country: None (occurrence: None)
  Receive Date: 20090825
  Receipt Date: 20090401
  Transmission Date: 20100115
  Serious: No
  Sender: FDA-Public Use
  Company Number: US-ABBOTT-09P-163-0566242-00

PATIENT
  Sex: Female
  Weight: 84.444 kg

DRUGS (5)
  1. SYNTHROID [Suspect]
     Indication: THYROID CANCER
     Dates: start: 20030101
  2. CARAFATE [Suspect]
     Indication: GASTRITIS
     Dates: start: 20090201
  3. VERAPAMIL [Concomitant]
     Indication: DRUG USE FOR UNKNOWN INDICATION
  4. NITROGLYCERIN [Concomitant]
     Indication: DRUG USE FOR UNKNOWN INDICATION
  5. ACTIGAL [Concomitant]
     Indication: DRUG USE FOR UNKNOWN INDICATION

REACTIONS (2)
  - BLOOD THYROID STIMULATING HORMONE INCREASED [None]
  - THYROXINE DECREASED [None]
